FAERS Safety Report 8506665-7 (Version None)
Quarter: 2012Q3

REPORT INFORMATION
  Report Type: 
  Country: None (occurrence: None)
  Receive Date: 20120712
  Receipt Date: 20120710
  Transmission Date: 20120928
  Serious: No
  Sender: FDA-Public Use
  Company Number: US-PFIZER INC-2012166022

PATIENT
  Sex: Female
  Weight: 63.492 kg

DRUGS (6)
  1. CHANTIX [Suspect]
     Indication: SMOKING CESSATION THERAPY
     Dosage: 0.5 MG, 1X/DAY
     Route: 048
     Dates: start: 20111001, end: 20120201
  2. VYVANSE [Concomitant]
     Dosage: UNK
  3. LAMICTAL [Concomitant]
     Indication: DEPRESSION
     Dosage: UNK
  4. PAXIL [Concomitant]
     Indication: DEPRESSION
     Dosage: UNK
  5. CHANTIX [Suspect]
     Dosage: 0.5 MG, 2X/DAY
     Route: 048
     Dates: start: 20120620
  6. XANAX [Concomitant]
     Indication: ANXIETY
     Dosage: UNK

REACTIONS (1)
  - DEPRESSION [None]
